FAERS Safety Report 25980941 (Version 1)
Quarter: 2025Q4

REPORT INFORMATION
  Report Type: Spontaneous
  Country: JP (occurrence: JP)
  Receive Date: 20251030
  Receipt Date: 20251030
  Transmission Date: 20260118
  Serious: Yes (Death, Other)
  Sender: JAZZ
  Company Number: JP-JAZZ PHARMACEUTICALS-2025-JP-024794

PATIENT
  Age: 72 Year
  Sex: Male

DRUGS (1)
  1. VYXEOS [Suspect]
     Active Substance: CYTARABINE\DAUNORUBICIN
     Indication: Acute myeloid leukaemia
     Dosage: UNK

REACTIONS (5)
  - Death [Fatal]
  - Subdural haematoma [Unknown]
  - Gastrointestinal haemorrhage [Unknown]
  - Blood lactate dehydrogenase increased [Recovering/Resolving]
  - Drug resistance [Unknown]
